FAERS Safety Report 22532825 (Version 1)
Quarter: 2023Q2

REPORT INFORMATION
  Report Type: Spontaneous
  Country: JP (occurrence: JP)
  Receive Date: 20230607
  Receipt Date: 20230607
  Transmission Date: 20230722
  Serious: Yes (Death, Other)
  Sender: FDA-Public Use
  Company Number: JP-002147023-NVSJ2020JP000690

PATIENT
  Age: 93 Year
  Sex: Male

DRUGS (2)
  1. QUETIAPINE [Suspect]
     Active Substance: QUETIAPINE
     Indication: Restlessness
     Dosage: 25 MG
     Route: 065
  2. QUETIAPINE [Suspect]
     Active Substance: QUETIAPINE
     Indication: Anxiety
     Dosage: 12.5 MG, BEFORE SLEEP
     Route: 065

REACTIONS (16)
  - Rhabdomyolysis [Fatal]
  - Chronic kidney disease [Fatal]
  - Concomitant disease aggravated [Fatal]
  - Ileus [Fatal]
  - Abdominal pain upper [Fatal]
  - Gastrointestinal hypomotility [Fatal]
  - Intestinal prolapse [Fatal]
  - Panniculitis [Fatal]
  - Ascites [Fatal]
  - Gastrointestinal oedema [Unknown]
  - Intestinal haemorrhage [Unknown]
  - White blood cell count decreased [Unknown]
  - Gastric dilatation [Unknown]
  - Intestinal dilatation [Unknown]
  - Fluid retention [Unknown]
  - Somnolence [Unknown]
